FAERS Safety Report 4832804-5 (Version None)
Quarter: 2005Q4

REPORT INFORMATION
  Report Type: 
  Country: None (occurrence: None)
  Receive Date: 20051121
  Receipt Date: 20051110
  Transmission Date: 20060501
  Serious: Yes (Hospitalization)
  Sender: FDA-Public Use
  Company Number: PHRM2005FR02977

PATIENT
  Age: 69 Year
  Sex: Male

DRUGS (6)
  1. NITRODERM [Suspect]
     Indication: ACUTE MYOCARDIAL INFARCTION
     Dosage: 1 DF, BID
     Route: 062
  2. ESOMEPRAZOLE (INEXIUM) [Suspect]
     Indication: OESOPHAGITIS
     Dosage: 1 DF, BID
     Route: 048
  3. PLAVIX [Suspect]
     Indication: ACUTE MYOCARDIAL INFARCTION
     Route: 048
     Dates: end: 20050210
  4. LOXEN LP [Suspect]
     Indication: HYPERTENSION
     Dosage: 50 MG, BID
     Route: 048
  5. SELOKEN [Suspect]
     Indication: HYPERTENSION
     Dosage: 50 MG, BID
     Route: 048
  6. AMAREL [Suspect]
     Indication: DIABETES MELLITUS
     Route: 048
     Dates: end: 20050210

REACTIONS (10)
  - ABDOMINAL PAIN UPPER [None]
  - ANAEMIA [None]
  - BARRETT'S OESOPHAGUS [None]
  - DUODENITIS [None]
  - GASTROINTESTINAL FUNGAL INFECTION [None]
  - GASTROINTESTINAL HAEMORRHAGE [None]
  - HAEMATEMESIS [None]
  - HAEMOGLOBIN DECREASED [None]
  - OESOPHAGITIS [None]
  - REFLUX GASTRITIS [None]
